FAERS Safety Report 11242907 (Version 1)
Quarter: 2015Q3

REPORT INFORMATION
  Report Type: Other
  Country: US (occurrence: US)
  Receive Date: 20150707
  Receipt Date: 20150707
  Transmission Date: 20151125
  Serious: Yes (Hospitalization, Other)
  Sender: FDA-Public Use
  Company Number: US-ACTELION-A-CH2015-120436

PATIENT
  Age: 15 Year
  Sex: Female

DRUGS (3)
  1. TADALAFIL [Concomitant]
     Active Substance: TADALAFIL
  2. TRACLEER [Suspect]
     Active Substance: BOSENTAN
     Indication: PULMONARY ARTERIAL HYPERTENSION
     Dosage: UNK
     Route: 048
  3. FLUOXETINE [Concomitant]
     Active Substance: FLUOXETINE\FLUOXETINE HYDROCHLORIDE

REACTIONS (11)
  - Ammonia increased [Unknown]
  - Asthenia [Unknown]
  - Fatigue [Unknown]
  - Loss of consciousness [Unknown]
  - Dizziness [Unknown]
  - Circulatory collapse [Unknown]
  - Hallucination [Unknown]
  - Paraesthesia [Recovered/Resolved]
  - Thrombocytopenia [Unknown]
  - Chest pain [Unknown]
  - Headache [Unknown]
